FAERS Safety Report 6014812-4 (Version None)
Quarter: 2008Q4

REPORT INFORMATION
  Report Type: 
  Country: None (occurrence: None)
  Receive Date: 20081219
  Receipt Date: 20081204
  Transmission Date: 20090506
  Serious: Yes (Hospitalization)
  Sender: FDA-Public Use
  Company Number: GB-PFIZER INC-2008093006

PATIENT

DRUGS (4)
  1. SILDENAFIL CITRATE [Suspect]
     Dosage: UNK
     Dates: start: 20051013
  2. FRUSEMIDE [Concomitant]
  3. DIGOXIN [Concomitant]
  4. PROSTACYCLIN [Concomitant]
     Dosage: UNK
     Route: 042
     Dates: start: 20040523

REACTIONS (3)
  - CENTRAL LINE INFECTION [None]
  - LETHARGY [None]
  - LOWER RESPIRATORY TRACT INFECTION [None]
